FAERS Safety Report 17316032 (Version 1)
Quarter: 2020Q1

REPORT INFORMATION
  Report Type: Spontaneous
  Country: US (occurrence: US)
  Receive Date: 20200124
  Receipt Date: 20200124
  Transmission Date: 20200409
  Serious: No
  Sender: FDA-Public Use
  Company Number: US-009507513-2001USA003978

PATIENT
  Sex: Female

DRUGS (2)
  1. NUVARING [Suspect]
     Active Substance: ETHINYL ESTRADIOL\ETONOGESTREL
     Dosage: IN 3 WEEKS AND OUT FOR 1 WEEK
     Route: 067
  2. NUVARING [Suspect]
     Active Substance: ETHINYL ESTRADIOL\ETONOGESTREL
     Dosage: IN 3 WEEKS AND OUT FOR 1 WEEK
     Route: 067
     Dates: start: 20191206

REACTIONS (3)
  - Device expulsion [Unknown]
  - Product lot number issue [Unknown]
  - No adverse event [Unknown]

NARRATIVE: CASE EVENT DATE: 20200109
